FAERS Safety Report 20779679 (Version 2)
Quarter: 2024Q1

REPORT INFORMATION
  Report Type: Spontaneous
  Country: US (occurrence: US)
  Receive Date: 20220503
  Receipt Date: 20240311
  Transmission Date: 20240410
  Serious: No
  Sender: FDA-Public Use
  Company Number: US-PFIZER INC-202101852744

PATIENT
  Age: 66 Year
  Sex: Female

DRUGS (2)
  1. XELJANZ [Suspect]
     Active Substance: TOFACITINIB CITRATE
     Dosage: 5 MG
  2. LYRICA CR [Concomitant]
     Active Substance: PREGABALIN

REACTIONS (1)
  - Herpes zoster [Not Recovered/Not Resolved]
